FAERS Safety Report 6050300-7 (Version None)
Quarter: 2009Q1

REPORT INFORMATION
  Report Type: 
  Country: None (occurrence: None)
  Receive Date: 20090126
  Receipt Date: 20090116
  Transmission Date: 20090719
  Serious: Yes (Other)
  Sender: FDA-Public Use
  Company Number: US-ROCHE-599189

PATIENT
  Sex: Female
  Weight: 94 kg

DRUGS (7)
  1. XELODA [Suspect]
     Dosage: ROUTE: INTRAVENOUS NOS, FREQUENCY: 2 WEEKS ON, 1 WEEK OFF
     Route: 048
  2. BEVACIZUMAB [Suspect]
     Route: 042
     Dates: end: 20080304
  3. OXALIPLATIN [Suspect]
     Route: 042
  4. FLUOROURACIL [Suspect]
     Route: 042
  5. LEUCOVORIN CALCIUM [Suspect]
     Route: 042
  6. CAMPTOSAR [Suspect]
     Route: 042
  7. VICODIN ES [Concomitant]
     Indication: PAIN
     Dosage: DURATION: 37 WEEKS 4 DAYS, DOSE: 1 TO 2 BY ONCE EVERY 6 HOURS AS NEEDED
     Route: 048
     Dates: start: 20080112, end: 20080930

REACTIONS (3)
  - EPISTAXIS [None]
  - NASAL DISORDER [None]
  - NASAL SEPTUM PERFORATION [None]
